FAERS Safety Report 6423700-0 (Version None)
Quarter: 2009Q4

REPORT INFORMATION
  Report Type: 
  Country: None (occurrence: None)
  Receive Date: 20091102
  Receipt Date: 20091029
  Transmission Date: 20100525
  Serious: Yes (Other)
  Sender: FDA-Public Use
  Company Number: ES-ROXANE LABORATORIES, INC.-2009-RO-01111RO

PATIENT
  Age: 22 Year
  Sex: Female

DRUGS (6)
  1. DIAZEPAM [Suspect]
     Indication: ACUTE STRESS DISORDER
  2. DIAZEPAM [Suspect]
     Dosage: 40 MG
  3. ETORICOXIB [Suspect]
     Indication: BACK PAIN
     Dosage: 60 MG
  4. ETORICOXIB [Suspect]
     Indication: BURSITIS
     Dosage: 840 MG
  5. CITALOPRAM [Concomitant]
     Indication: DEPRESSION
     Dosage: 10 MG
  6. OMEPRAZOLE [Concomitant]
     Indication: DYSPEPSIA
     Dosage: 20 MG

REACTIONS (3)
  - DYSPEPSIA [None]
  - INTENTIONAL OVERDOSE [None]
  - OVERDOSE [None]
